FAERS Safety Report 9499077 (Version 2)
Quarter: 2013Q4

REPORT INFORMATION
  Report Type: Spontaneous
  Country: GB (occurrence: GB)
  Receive Date: 20130904
  Receipt Date: 20131205
  Transmission Date: 20140711
  Serious: Yes (Disabling)
  Sender: FDA-Public Use
  Company Number: GB-WATSON-2013-15549

PATIENT
  Age: 43 Year
  Sex: Female

DRUGS (8)
  1. MIRTAZAPINE (UNKNOWN) [Suspect]
     Indication: PRODUCT USED FOR UNKNOWN INDICATION
     Dosage: 15 MG, UNK
     Route: 065
     Dates: start: 20130806, end: 20130809
  2. MIRTAZAPINE (UNKNOWN) [Suspect]
     Dosage: 15 MG, UNK
     Route: 065
     Dates: start: 201302
  3. MIRTAZAPINE (UNKNOWN) [Suspect]
     Dosage: 30 MG, UNK
     Route: 065
  4. MIRTAZAPINE (UNKNOWN) [Suspect]
     Dosage: UNK
  5. FLUOXETINE [Concomitant]
     Indication: PRODUCT USED FOR UNKNOWN INDICATION
     Dosage: UNK
     Route: 065
     Dates: start: 20130612, end: 20130712
  6. FLUOXETINE [Concomitant]
     Dosage: UNK
     Route: 065
     Dates: start: 20130501, end: 20130531
  7. HYDROXYZINE [Concomitant]
     Indication: INSOMNIA
     Dosage: UNK
     Route: 065
  8. FLUCLOXACILLIN [Concomitant]
     Indication: CELLULITIS
     Dosage: UNK
     Route: 065

REACTIONS (5)
  - Confusional state [Recovered/Resolved]
  - Dyspnoea [Recovered/Resolved]
  - Rash [Recovered/Resolved]
  - Arthralgia [Recovered/Resolved]
  - Liver function test abnormal [Unknown]
